FAERS Safety Report 19932570 (Version 1)
Quarter: 2021Q4

REPORT INFORMATION
  Report Type: Spontaneous
  Country: US (occurrence: US)
  Receive Date: 20211006
  Receipt Date: 20211006
  Transmission Date: 20220303
  Serious: No
  Sender: FDA-Public Use
  Company Number: None

PATIENT

DRUGS (2)
  1. AMOXICILLIN [Suspect]
     Active Substance: AMOXICILLIN
  2. AMOXAPINE [Suspect]
     Active Substance: AMOXAPINE

REACTIONS (4)
  - Transcription medication error [None]
  - Product dispensing error [None]
  - Wrong product administered [None]
  - Drug monitoring procedure incorrectly performed [None]
